FAERS Safety Report 8384321-6 (Version None)
Quarter: 2012Q2

REPORT INFORMATION
  Report Type: 
  Country: None (occurrence: None)
  Receive Date: 20120524
  Receipt Date: 20120515
  Transmission Date: 20120825
  Serious: Yes (Life-Threatening)
  Sender: FDA-Public Use
  Company Number: JP-CELGENEUS-087-50794-12052621

PATIENT
  Sex: Male
  Weight: 55 kg

DRUGS (10)
  1. VIDAZA [Suspect]
     Dosage: 75 MILLIGRAM/SQ. METER
     Route: 041
     Dates: start: 20110617, end: 20110623
  2. VIDAZA [Suspect]
     Dosage: 75 MILLIGRAM/SQ. METER
     Route: 041
     Dates: start: 20110728, end: 20110803
  3. SEROTONE [Concomitant]
     Route: 065
     Dates: start: 20110617, end: 20110623
  4. VIDAZA [Suspect]
     Dosage: 75 MILLIGRAM/SQ. METER
     Route: 058
     Dates: start: 20110513, end: 20110519
  5. OLOPATADINE HCL [Concomitant]
     Route: 065
  6. RAMELTEON [Concomitant]
     Route: 065
     Dates: start: 20110519, end: 20110523
  7. SEROTONE [Concomitant]
     Route: 065
     Dates: start: 20110513, end: 20110515
  8. ALLOPURINOL [Concomitant]
     Route: 065
     Dates: start: 20110513
  9. LANSOPRAZOLE [Concomitant]
     Route: 065
     Dates: start: 20110513
  10. SEROTONE [Concomitant]
     Route: 065
     Dates: start: 20110728, end: 20110803

REACTIONS (1)
  - FEBRILE NEUTROPENIA [None]
